FAERS Safety Report 7698999-3 (Version None)
Quarter: 2011Q3

REPORT INFORMATION
  Report Type: 
  Country: None (occurrence: None)
  Receive Date: 20110819
  Receipt Date: 20110811
  Transmission Date: 20111222
  Serious: Yes (Hospitalization)
  Sender: FDA-Public Use
  Company Number: CA-ABBOTT-10P-028-0689015-01

PATIENT
  Sex: Male
  Weight: 62 kg

DRUGS (6)
  1. HUMIRA [Concomitant]
     Indication: PRODUCT USED FOR UNKNOWN INDICATION
     Route: 058
     Dates: start: 20060403
  2. CORTICOSTEROIDS [Concomitant]
     Indication: PSORIASIS
     Dosage: LOW POTENCY
  3. HUMIRA [Suspect]
     Route: 058
  4. RETIONOID [Concomitant]
     Indication: PSORIASIS
  5. TAZAROTENE [Concomitant]
     Indication: PSORIASIS
  6. HUMIRA [Suspect]
     Indication: PSORIASIS
     Route: 058
     Dates: start: 20091008

REACTIONS (1)
  - CROHN'S DISEASE [None]
